FAERS Safety Report 20305498 (Version 1)
Quarter: 2022Q1

REPORT INFORMATION
  Report Type: Spontaneous
  Country: US (occurrence: US)
  Receive Date: 20220106
  Receipt Date: 20220106
  Transmission Date: 20220423
  Serious: Yes (Hospitalization, Other)
  Sender: FDA-Public Use
  Company Number: US-AMNEAL PHARMACEUTICALS-2020-AMRX-03908

PATIENT
  Age: 38 Year
  Sex: Female
  Weight: 126 kg

DRUGS (15)
  1. ACTIVELLA [Suspect]
     Active Substance: ESTRADIOL\NORETHINDRONE ACETATE
     Indication: Uterine leiomyoma
     Dosage: 1 DOSAGE FORM, DAILY
     Route: 048
     Dates: start: 20200603
  2. ELAGOLIX [Suspect]
     Active Substance: ELAGOLIX
     Indication: Uterine leiomyoma
     Dosage: 300 MILLIGRAM, (AM AND PM DOSE)
     Route: 048
     Dates: start: 20200603
  3. BUDESONIDE [Concomitant]
     Active Substance: BUDESONIDE
     Indication: Asthma
     Dosage: 0.5 MILLIGRAM AS NEEDED
     Dates: start: 1998
  4. ALBUTEROL SULFATE [Concomitant]
     Active Substance: ALBUTEROL SULFATE
     Indication: Asthma
     Dosage: 2.5 MILLIGRAM (AS NEEDED) (2 PUFF,AS REQUIRED)
     Dates: start: 19980101
  5. ALBUTEROL SULFATE [Concomitant]
     Active Substance: ALBUTEROL SULFATE
     Indication: Asthma
  6. FASENRA [Concomitant]
     Active Substance: BENRALIZUMAB
     Indication: Asthma
     Dosage: 30 MILLIGRAM (1 IN 60 D)
     Route: 058
     Dates: start: 20150101
  7. MEFENAMIC ACID [Concomitant]
     Active Substance: MEFENAMIC ACID
     Indication: Pelvic pain
     Dosage: 250 MILLIGRAM (AS REQUIRED)
     Route: 048
     Dates: start: 19980201
  8. FIORICET [Concomitant]
     Active Substance: ACETAMINOPHEN\BUTALBITAL\CAFFEINE
     Indication: Migraine
     Dosage: 50/300/40 MG (AS REQUIRED)
     Route: 048
     Dates: start: 20000101
  9. IBUPROFEN [Concomitant]
     Active Substance: IBUPROFEN
     Indication: Dysmenorrhoea
     Dosage: 800 MILLIGRAM (AS REQUIRED)
     Route: 048
     Dates: start: 19980101
  10. SINGULAIR [Concomitant]
     Active Substance: MONTELUKAST SODIUM
     Indication: Asthma
     Dosage: 10 MILLIGRAM, 1 /DAY
     Route: 048
     Dates: start: 19980101
  11. METFORMIN [Concomitant]
     Active Substance: METFORMIN HYDROCHLORIDE
     Indication: Polycystic ovaries
     Dosage: 1000 MICROGRAM, 1 /DAY
     Route: 048
     Dates: start: 20030101
  12. EPIPEN [Concomitant]
     Active Substance: EPINEPHRINE
     Indication: Rubber sensitivity
     Dosage: 1 DOSAGE FORM (AS REQUIRED)
     Route: 058
     Dates: start: 20080101
  13. CLARITIN [Concomitant]
     Active Substance: LORATADINE
     Indication: Seasonal allergy
     Dosage: 10 MILLIGRAM, 1 /DAY
     Route: 048
     Dates: start: 20190501
  14. ERGOCALCIFEROL [Concomitant]
     Active Substance: ERGOCALCIFEROL
     Indication: Vitamin D deficiency
     Dosage: 50000 INTERNATIONAL UNIT, 1 /WEEK
     Route: 048
     Dates: start: 20190328
  15. ISOSORBIDE [Concomitant]
     Active Substance: ISOSORBIDE
     Indication: Arrhythmia
     Dosage: 30 MILLIGRAM, 1 /DAY
     Route: 048

REACTIONS (2)
  - Asthma [Unknown]
  - Ankle fracture [Recovered/Resolved]

NARRATIVE: CASE EVENT DATE: 20201010
